FAERS Safety Report 6156018-4 (Version None)
Quarter: 2009Q2

REPORT INFORMATION
  Report Type: 
  Country: None (occurrence: None)
  Receive Date: 20090413
  Receipt Date: 20090413
  Transmission Date: 20091009
  Serious: No
  Sender: FDA-Public Use
  Company Number: None

PATIENT
  Age: 57 Year
  Sex: Female
  Weight: 90.7194 kg

DRUGS (2)
  1. CYMBALTA [Suspect]
     Indication: DEPRESSION
     Dosage: 30MGM 2 DAY PO
     Route: 048
     Dates: start: 20090216, end: 20090321
  2. CYMBALTA [Suspect]
     Indication: FIBROMYALGIA
     Dosage: 30MGM 2 DAY PO
     Route: 048
     Dates: start: 20090216, end: 20090321

REACTIONS (2)
  - RASH [None]
  - RESPIRATORY DISORDER [None]
